FAERS Safety Report 8920407 (Version 1)
Quarter: 2012Q4

REPORT INFORMATION
  Report Type: 
  Country: US (occurrence: US)
  Receive Date: 20121122
  Receipt Date: 20121122
  Transmission Date: 20130627
  Serious: Yes (Other)
  Sender: FDA-Public Use
  Company Number: CHPA2012US023567

PATIENT
  Age: 59 Year
  Sex: Female

DRUGS (2)
  1. BENEFIBER UNKNOWN [Suspect]
     Indication: BOWEL MOVEMENT IRREGULARITY
     Dosage: 2 TSP, QD
     Route: 048
  2. DRUG THERAPY NOS [Concomitant]
     Dosage: 4 to 5 TABLETS, EVERY MORNING

REACTIONS (4)
  - Diabetes mellitus [Not Recovered/Not Resolved]
  - Crohn^s disease [Recovered/Resolved]
  - Therapeutic response unexpected [Unknown]
  - Off label use [Unknown]
